FAERS Safety Report 24378252 (Version 2)
Quarter: 2024Q4

REPORT INFORMATION
  Report Type: Spontaneous
  Country: BE (occurrence: BE)
  Receive Date: 20240930
  Receipt Date: 20241002
  Transmission Date: 20250114
  Serious: Yes (Other)
  Sender: PFIZER
  Company Number: BE-AMGEN-BELSP2024182854

PATIENT
  Sex: Female

DRUGS (7)
  1. METHOTREXATE SODIUM [Suspect]
     Active Substance: METHOTREXATE SODIUM
     Indication: Inflammatory bowel disease
     Dosage: 15 MG/M2, WEEKLY
  2. METHYLPREDNISOLONE [Suspect]
     Active Substance: METHYLPREDNISOLONE
     Indication: Inflammatory bowel disease
     Dosage: UP TO 2 MG/KG, DAILY
  3. ADALIMUMAB [Suspect]
     Active Substance: ADALIMUMAB
     Indication: Inflammatory bowel disease
     Dosage: 40 MG, EVERY 2 WEEKS
  4. ADALIMUMAB [Suspect]
     Active Substance: ADALIMUMAB
     Dosage: 40 MG, EVERY 3 WEEKS
     Route: 065
  5. CANAKINUMAB [Suspect]
     Active Substance: CANAKINUMAB
     Indication: Mevalonate kinase deficiency
     Dosage: 8 MG/KG, MONTHLY
  6. ANAKINRA [Suspect]
     Active Substance: ANAKINRA
     Indication: Mevalonate kinase deficiency
     Dosage: 5 MG/KG, 1X/DAY
     Route: 065
  7. ANAKINRA [Suspect]
     Active Substance: ANAKINRA
     Dosage: 8 MG/KG, 1X/DAY
     Route: 065

REACTIONS (5)
  - Pneumonia [Recovered/Resolved]
  - Systemic candida [Recovered/Resolved]
  - Device related infection [Recovered/Resolved]
  - Off label use [Unknown]
  - Drug ineffective for unapproved indication [Unknown]
